FAERS Safety Report 5200051-3 (Version None)
Quarter: 2007Q1

REPORT INFORMATION
  Report Type: 
  Country: None (occurrence: None)
  Receive Date: 20070105
  Receipt Date: 20061228
  Transmission Date: 20070707
  Serious: Yes (Hospitalization, Disabling, Other)
  Sender: FDA-Public Use
  Company Number: US-ELI_LILLY_AND_COMPANY-US200607002741

PATIENT
  Age: 30 Year
  Sex: Female
  Weight: 171 kg

DRUGS (7)
  1. HUMALOG [Suspect]
     Indication: BLOOD GLUCOSE INCREASED
     Dosage: 60 U, 3/D
     Dates: start: 20040101
  2. HUMALOG [Suspect]
     Dosage: 400 U, UNK
  3. HUMULIN R [Suspect]
     Indication: GESTATIONAL DIABETES
     Dates: start: 19920101
  4. HUMULIN R [Suspect]
     Dates: start: 20020101, end: 20040101
  5. HUMULIN N [Suspect]
     Dates: start: 20020101, end: 20040101
  6. DIURETICS [Concomitant]
     Indication: FLUID RETENTION
     Dosage: 5 MG, DAILY (1/D)
  7. ACTOS /USA/ [Concomitant]
     Indication: BLOOD GLUCOSE INCREASED
     Dates: start: 20020101, end: 20060401

REACTIONS (21)
  - ABDOMINAL PAIN UPPER [None]
  - BACK PAIN [None]
  - BLISTER INFECTED [None]
  - BLOOD GLUCOSE DECREASED [None]
  - BLOOD GLUCOSE INCREASED [None]
  - CELLULITIS [None]
  - DECREASED APPETITE [None]
  - DRUG EXPOSURE DURING PREGNANCY [None]
  - DYSSTASIA [None]
  - ENURESIS [None]
  - EYE HAEMORRHAGE [None]
  - FLUID RETENTION [None]
  - GAIT DISTURBANCE [None]
  - HYPERHIDROSIS [None]
  - INTERVERTEBRAL DISC DISORDER [None]
  - OEDEMA PERIPHERAL [None]
  - PRURITUS [None]
  - SKIN DISCOLOURATION [None]
  - SLEEP DISORDER [None]
  - URINARY INCONTINENCE [None]
  - WEIGHT INCREASED [None]
